FAERS Safety Report 20896829 (Version 1)
Quarter: 2022Q2

REPORT INFORMATION
  Report Type: Spontaneous
  Country: US (occurrence: None)
  Receive Date: 20220530
  Receipt Date: 20220530
  Transmission Date: 20220721
  Serious: Yes (Other)
  Sender: FDA-Public Use
  Company Number: None

PATIENT
  Age: 38 Year
  Sex: Female
  Weight: 55.4 kg

DRUGS (1)
  1. EMGALITY [Suspect]
     Active Substance: GALCANEZUMAB-GNLM
     Indication: Migraine
     Dosage: OTHER FREQUENCY : LOAD DOSE- 1 TIME;?
     Route: 058
     Dates: start: 20220418, end: 20220418

REACTIONS (10)
  - Hypoaesthesia [None]
  - Hypoaesthesia [None]
  - Hypoaesthesia [None]
  - Hypoaesthesia [None]
  - Feeling jittery [None]
  - Tremor [None]
  - Vision blurred [None]
  - Impaired healing [None]
  - Headache [None]
  - Pruritus [None]
